FAERS Safety Report 8369613-9 (Version None)
Quarter: 2012Q2

REPORT INFORMATION
  Report Type: 
  Country: None (occurrence: None)
  Receive Date: 20120518
  Receipt Date: 20120515
  Transmission Date: 20120825
  Serious: Yes (Other)
  Sender: FDA-Public Use
  Company Number: PHHY2011NL115434

PATIENT
  Age: 79 Year
  Sex: Female
  Weight: 68 kg

DRUGS (7)
  1. ALDACTONE [Concomitant]
     Dosage: UNK UKN, UNK
  2. SANDOSTATIN LAR [Suspect]
     Dosage: 30 MG ONCE PER 4 WEEKS
     Route: 030
     Dates: start: 20070404
  3. NEWACE [Concomitant]
     Dosage: 10 MG, UNK
     Route: 048
  4. FUROSEMIDE [Concomitant]
     Dosage: 1X40MG
     Route: 048
  5. AMIODARONE HCL [Concomitant]
     Dosage: 1X200MG
     Route: 048
  6. LISINOPRIL [Concomitant]
     Dosage: 10 MG, UNK
     Route: 048
  7. SANDOSTATIN LAR [Suspect]
     Indication: ACROMEGALY
     Dosage: 30 MG PER MONTH
     Route: 030
     Dates: start: 20060201

REACTIONS (7)
  - OEDEMA PERIPHERAL [None]
  - ARTHRALGIA [None]
  - OSTEOARTHRITIS [None]
  - MUSCULOSKELETAL PAIN [None]
  - CARDIAC FAILURE [None]
  - PAIN [None]
  - MUSCULOSKELETAL DISCOMFORT [None]
